FAERS Safety Report 14235897 (Version 1)
Quarter: 2017Q4

REPORT INFORMATION
  Report Type: Spontaneous
  Country: FR (occurrence: FR)
  Receive Date: 20171129
  Receipt Date: 20171129
  Transmission Date: 20180321
  Serious: Yes (Other)
  Sender: FDA-Public Use
  Company Number: FR-MERCK KGAA-2036234

PATIENT
  Sex: Female

DRUGS (2)
  1. NOVOTHYROX [Suspect]
     Active Substance: LEVOTHYROXINE SODIUM
  2. NOVOTHYROX [Suspect]
     Active Substance: LEVOTHYROXINE SODIUM
     Indication: PRODUCT USED FOR UNKNOWN INDICATION

REACTIONS (12)
  - Fatigue [None]
  - Alopecia [None]
  - Malaise [None]
  - Insomnia [None]
  - Weight decreased [None]
  - Pain in extremity [None]
  - Eye pain [None]
  - Tremor [None]
  - Hyperthyroidism [None]
  - Crying [None]
  - Angina pectoris [None]
  - Anxiety [None]
